FAERS Safety Report 17452423 (Version 5)
Quarter: 2020Q1

REPORT INFORMATION
  Report Type: Spontaneous
  Country: US (occurrence: US)
  Receive Date: 20200224
  Receipt Date: 20200303
  Transmission Date: 20200409
  Serious: Yes (Other)
  Sender: FDA-Public Use
  Company Number: US-PFIZER INC-2020078924

PATIENT
  Age: 67 Year
  Sex: Male
  Weight: 83.91 kg

DRUGS (7)
  1. PLAVIX [Concomitant]
     Active Substance: CLOPIDOGREL BISULFATE
     Dosage: 75 MG, UNK
  2. VYNDAQEL [Suspect]
     Active Substance: TAFAMIDIS MEGLUMINE
     Indication: AMYLOIDOSIS
     Dosage: 80 MG, 1X/DAY
     Route: 048
     Dates: start: 201911
  3. ELIQUIS [Concomitant]
     Active Substance: APIXABAN
     Dosage: UNK
  4. ATORVASTATIN [Concomitant]
     Active Substance: ATORVASTATIN
     Indication: BLOOD CHOLESTEROL ABNORMAL
     Dosage: 40 MG, UNK
  5. POTASSIUM [Concomitant]
     Active Substance: POTASSIUM
     Dosage: UNK
  6. LISINOPRIL. [Concomitant]
     Active Substance: LISINOPRIL
     Dosage: 20 MG, UNK
  7. TORSEMIDE. [Concomitant]
     Active Substance: TORSEMIDE
     Indication: DIURETIC THERAPY
     Dosage: UNK

REACTIONS (12)
  - Oedema peripheral [Unknown]
  - Atrial fibrillation [Unknown]
  - Cardiac failure [Unknown]
  - Off label use [Unknown]
  - Weight increased [Unknown]
  - Abdominal pain upper [Unknown]
  - Left ventricular hypertrophy [Unknown]
  - Heart rate increased [Recovering/Resolving]
  - Dyspnoea [Unknown]
  - Palpitations [Unknown]
  - Product use in unapproved indication [Unknown]
  - Fatigue [Unknown]

NARRATIVE: CASE EVENT DATE: 201911
